FAERS Safety Report 9730122 (Version 3)
Quarter: 2013Q4

REPORT INFORMATION
  Report Type: Report from Study
  Country: US (occurrence: US)
  Receive Date: 20131204
  Receipt Date: 20131224
  Transmission Date: 20140711
  Serious: Yes (Hospitalization)
  Sender: FDA-Public Use
  Company Number: US-ACTELION-A-US2013-88713

PATIENT
  Age: 71 Year
  Sex: Female

DRUGS (9)
  1. VENTAVIS [Suspect]
     Indication: PULMONARY ARTERIAL HYPERTENSION
     Dosage: 5 MCG, 4 TIMES A DAY
     Route: 055
     Dates: start: 201308
  2. COUMADIN [Concomitant]
  3. SIMVASTATIN [Concomitant]
  4. SPIRIVA [Concomitant]
  5. CALCIUM CARBONATE [Concomitant]
  6. VITAMIN D3 [Concomitant]
  7. MOMETASONE FUROATE [Concomitant]
  8. PROCUR [Concomitant]
  9. METOPROLOL [Concomitant]

REACTIONS (13)
  - Gait disturbance [Unknown]
  - Dyspnoea [Unknown]
  - Aphthous stomatitis [Unknown]
  - Cough [Unknown]
  - Throat irritation [Unknown]
  - Fatigue [Unknown]
  - Headache [Unknown]
  - Pain in jaw [Unknown]
  - Dry mouth [Unknown]
  - Dyspnoea exertional [Unknown]
  - Nasopharyngitis [Unknown]
  - Asthenia [Not Recovered/Not Resolved]
  - Drug intolerance [Unknown]
